FAERS Safety Report 5284165-8 (Version None)
Quarter: 2007Q2

REPORT INFORMATION
  Report Type: 
  Country: None (occurrence: None)
  Receive Date: 20070403
  Receipt Date: 20070328
  Transmission Date: 20071010
  Serious: Yes (Other)
  Sender: FDA-Public Use
  Company Number: US-JNJFOC-20070306762

PATIENT
  Sex: Male
  Weight: 90.72 kg

DRUGS (5)
  1. PEPCID COMPLETE [Suspect]
     Route: 048
  2. PEPCID COMPLETE [Suspect]
     Indication: DYSPEPSIA
     Route: 048
  3. INDERAL [Concomitant]
     Indication: BLOOD PRESSURE ABNORMAL
     Dosage: 1-2X DAILY
  4. METFORMIN [Concomitant]
     Indication: DIABETES MELLITUS
  5. ORETIC [Concomitant]
     Indication: BLOOD PRESSURE ABNORMAL

REACTIONS (1)
  - BLOOD GLUCOSE INCREASED [None]
